FAERS Safety Report 9242021 (Version 1)
Quarter: 2013Q2

REPORT INFORMATION
  Report Type: Spontaneous
  Country: DE (occurrence: DE)
  Receive Date: 20130419
  Receipt Date: 20130419
  Transmission Date: 20140414
  Serious: Yes (Hospitalization)
  Sender: FDA-Public Use
  Company Number: GXKR2013DE001488

PATIENT
  Sex: 0

DRUGS (2)
  1. MINOCYCLINE [Suspect]
     Indication: BORRELIA INFECTION
     Dosage: 50 MG, BID (50-0-50)
     Route: 048
     Dates: start: 20120906, end: 20120911
  2. CHOLESTYRAMIN [Concomitant]
     Indication: BORRELIA INFECTION
     Dosage: 0-4-0-4-0
     Route: 048
     Dates: start: 20120903, end: 20120911

REACTIONS (2)
  - Syncope [Recovered/Resolved]
  - Loss of consciousness [Recovered/Resolved]
